FAERS Safety Report 5852977-5 (Version None)
Quarter: 2008Q3

REPORT INFORMATION
  Report Type: 
  Country: None (occurrence: None)
  Receive Date: 20080821
  Receipt Date: 20080813
  Transmission Date: 20090109
  Serious: Yes (Other)
  Sender: FDA-Public Use
  Company Number: US-JNJFOC-20080803731

PATIENT
  Sex: Male

DRUGS (2)
  1. IMODIUM [Suspect]
  2. IMODIUM [Suspect]
     Indication: DIARRHOEA

REACTIONS (4)
  - FEELING OF BODY TEMPERATURE CHANGE [None]
  - MUSCLE SPASMS [None]
  - MUSCLE TWITCHING [None]
  - OVERDOSE [None]
